FAERS Safety Report 7600094-6 (Version None)
Quarter: 2011Q3

REPORT INFORMATION
  Report Type: 
  Country: None (occurrence: None)
  Receive Date: 20110711
  Receipt Date: 20110629
  Transmission Date: 20111222
  Serious: Yes (Death)
  Sender: FDA-Public Use
  Company Number: JP-JNJFOC-20110608487

PATIENT
  Age: 64 Year
  Sex: Male
  Weight: 50 kg

DRUGS (8)
  1. REMICADE [Suspect]
     Dosage: 5TH INFUSION
     Route: 042
     Dates: start: 20110426
  2. REMICADE [Suspect]
     Route: 042
     Dates: start: 20110112
  3. REMICADE [Suspect]
     Indication: COLITIS ULCERATIVE
     Dosage: 1ST INFUSION
     Route: 042
     Dates: start: 20101203
  4. LAC-B [Concomitant]
     Indication: COLITIS ULCERATIVE
     Route: 048
  5. REMICADE [Suspect]
     Route: 042
     Dates: start: 20110309
  6. FERROUS CITRATE [Concomitant]
     Indication: ANAEMIA
     Route: 048
  7. REMICADE [Suspect]
     Route: 042
     Dates: start: 20101215
  8. ISONIAZID [Concomitant]
     Indication: ANTIBIOTIC PROPHYLAXIS
     Dates: start: 20101203

REACTIONS (1)
  - DEATH [None]
